FAERS Safety Report 4484240-1 (Version None)
Quarter: 2004Q4

REPORT INFORMATION
  Report Type: 
  Country: None (occurrence: None)
  Receive Date: 20041025
  Receipt Date: 20040926
  Transmission Date: 20050328
  Serious: Yes (Other)
  Sender: FDA-Public Use
  Company Number: BE-GLAXOSMITHKLINE-B0346870A

PATIENT
  Age: 28 Year
  Sex: Male
  Weight: 84 kg

DRUGS (2)
  1. LAMICTAL [Suspect]
     Indication: STATUS EPILEPTICUS
     Route: 048
     Dates: start: 20020101
  2. DEPAKENE [Concomitant]
     Indication: EPILEPSY
     Dosage: 500MG TWICE PER DAY
     Route: 048
     Dates: start: 20000101

REACTIONS (5)
  - CONFUSIONAL STATE [None]
  - DIPLOPIA [None]
  - DYSPRAXIA [None]
  - SOMNOLENCE [None]
  - VERTIGO [None]
